FAERS Safety Report 9206148 (Version 3)
Quarter: 2014Q2

REPORT INFORMATION
  Report Type: Spontaneous
  Country: US (occurrence: US)
  Receive Date: 20130403
  Receipt Date: 20140409
  Transmission Date: 20141212
  Serious: Yes (Other)
  Sender: FDA-Public Use
  Company Number: US-BAYER-2013-040368

PATIENT
  Age: 19 Year
  Sex: Female
  Weight: 85.44 kg

DRUGS (6)
  1. OCELLA [Suspect]
  2. ZYRTEC [Concomitant]
     Dosage: 10 MG, DAILY
     Dates: start: 20090520
  3. LORTAB [Concomitant]
     Indication: PAIN
     Dosage: 5/500 MG PRN
     Dates: start: 20090520
  4. PHENERGAN [Concomitant]
     Dosage: 20 MG, PRN
     Dates: start: 20090520
  5. DICYCLOMINE [Concomitant]
     Dosage: 20 MG, DAILY
     Dates: start: 20090520
  6. VICODIN [Concomitant]

REACTIONS (7)
  - Gallbladder injury [None]
  - Cholecystitis chronic [None]
  - Pain [None]
  - Injury [None]
  - Fear of disease [None]
  - Anhedonia [None]
  - Anxiety [None]
